FAERS Safety Report 14497328 (Version 2)
Quarter: 2018Q2

REPORT INFORMATION
  Report Type: Spontaneous
  Country: JP (occurrence: JP)
  Receive Date: 20180207
  Receipt Date: 20180502
  Transmission Date: 20180711
  Serious: Yes (Hospitalization, Other)
  Sender: FDA-Public Use
  Company Number: JP-GLAXOSMITHKLINE-JP2018JPN019048

PATIENT
  Age: 28 Year
  Sex: Female

DRUGS (3)
  1. DEPAS (ETIZOLAM) [Concomitant]
     Indication: BIPOLAR DISORDER
     Dosage: 1.0 MG, 1D
     Dates: start: 201202, end: 201205
  2. LAMICTAL [Suspect]
     Active Substance: LAMOTRIGINE
     Indication: BIPOLAR DISORDER
     Dosage: 50 MG, 1D
     Route: 048
     Dates: start: 20120508, end: 201206
  3. PAXIL [Concomitant]
     Active Substance: PAROXETINE HYDROCHLORIDE
     Indication: BIPOLAR DISORDER
     Dosage: 20 MG, 1D
     Dates: start: 201202, end: 201205

REACTIONS (6)
  - Pyrexia [Unknown]
  - Rash maculo-papular [Unknown]
  - Lymphadenopathy [Unknown]
  - Drug reaction with eosinophilia and systemic symptoms [Recovering/Resolving]
  - Rash pustular [Unknown]
  - Medication error [Unknown]

NARRATIVE: CASE EVENT DATE: 20120605
